FAERS Safety Report 7986193-8 (Version None)
Quarter: 2011Q4

REPORT INFORMATION
  Report Type: 
  Country: None (occurrence: None)
  Receive Date: 20111216
  Receipt Date: 20111213
  Transmission Date: 20120403
  Serious: Yes (Hospitalization, Other)
  Sender: FDA-Public Use
  Company Number: US-GLAXOSMITHKLINE-A0946680A

PATIENT
  Age: 36 Year
  Sex: Female
  Weight: 99.8 kg

DRUGS (4)
  1. COUMADIN [Suspect]
     Indication: PULMONARY ARTERIAL HYPERTENSION
     Route: 048
  2. FLOLAN [Suspect]
     Indication: PULMONARY ARTERIAL HYPERTENSION
     Dosage: 21NGKM UNKNOWN
     Route: 042
     Dates: start: 20110328
  3. TRACLEER [Concomitant]
     Dosage: 125MG TWICE PER DAY
  4. REVATIO [Concomitant]

REACTIONS (4)
  - BRAIN OEDEMA [None]
  - SUBDURAL HAEMATOMA [None]
  - HEADACHE [None]
  - HAEMORRHAGE [None]
